FAERS Safety Report 5928157-1 (Version None)
Quarter: 2008Q4

REPORT INFORMATION
  Report Type: 
  Country: None (occurrence: None)
  Receive Date: 20081023
  Receipt Date: 20081020
  Transmission Date: 20090506
  Serious: Yes (Death)
  Sender: FDA-Public Use
  Company Number: CA-JNJFOC-20081002153

PATIENT
  Sex: Female
  Weight: 83 kg

DRUGS (2)
  1. RISPERDAL [Suspect]
     Indication: AGITATION
     Route: 048
  2. LASIX [Concomitant]
     Route: 065

REACTIONS (6)
  - HYPOKINESIA [None]
  - MOVEMENT DISORDER [None]
  - MUSCLE RIGIDITY [None]
  - PNEUMONIA ASPIRATION [None]
  - SPEECH DISORDER [None]
  - TONGUE PARALYSIS [None]
